FAERS Safety Report 20292052 (Version 1)
Quarter: 2022Q1

REPORT INFORMATION
  Report Type: Spontaneous
  Country: US (occurrence: US)
  Receive Date: 20220104
  Receipt Date: 20220104
  Transmission Date: 20220423
  Serious: No
  Sender: FDA-Public Use
  Company Number: US-MYLANLABS-2021M1075748

PATIENT
  Sex: Female

DRUGS (1)
  1. ESTRADIOL TRANSDERMAL SYSTEM [Suspect]
     Active Substance: ESTRADIOL
     Indication: Blood oestrogen abnormal
     Dosage: 0.1 MILLIGRAM ONE TWICE WEEKLY
     Route: 062

REACTIONS (2)
  - Blood oestrogen increased [Unknown]
  - Therapeutic product effect increased [Unknown]
